FAERS Safety Report 5567936-X (Version None)
Quarter: 2007Q4

REPORT INFORMATION
  Report Type: 
  Country: None (occurrence: None)
  Receive Date: 20071218
  Receipt Date: 20071218
  Transmission Date: 20080405
  Serious: No
  Sender: FDA-Public Use
  Company Number: None

PATIENT
  Age: 18 Year
  Sex: Male
  Weight: 81.6475 kg

DRUGS (6)
  1. QUETIAPINE FUMARATE [Suspect]
     Dosage: PO
     Route: 048
  2. LORAZEPAM [Concomitant]
  3. DEPAKOTE [Concomitant]
  4. CLONIDINE [Concomitant]
  5. DIPHENHYDRAMINE HCL [Concomitant]
  6. SUMATRIPTAN SUCCINATE [Concomitant]

REACTIONS (2)
  - BLOOD CREATINE PHOSPHOKINASE INCREASED [None]
  - DYSTONIA [None]
